FAERS Safety Report 7683569-3 (Version None)
Quarter: 2011Q3

REPORT INFORMATION
  Report Type: 
  Country: None (occurrence: None)
  Receive Date: 20110811
  Receipt Date: 20110725
  Transmission Date: 20111222
  Serious: Yes (Hospitalization)
  Sender: FDA-Public Use
  Company Number: 2011PROUSA00505

PATIENT
  Age: 76 Year
  Sex: Male
  Weight: 153.4 kg

DRUGS (9)
  1. LUPRON [Concomitant]
  2. PROVENGE [Suspect]
     Indication: PROSTATE CANCER METASTATIC
     Dosage: 250 ML, SINGLE, INTRAVENOUS
     Route: 042
     Dates: start: 20110711, end: 20110711
  3. HYDROCHLOROTHIAZIDE [Concomitant]
  4. XOPENEX (LEVOSALBUTAMOL HYDROCHLORIDE) [Concomitant]
  5. DILTIAZEM [Concomitant]
  6. MICONAZOLE NITRATE [Concomitant]
  7. PERCOCET [Concomitant]
  8. SYMBICORT [Concomitant]
  9. TRAZODONE HCL [Concomitant]

REACTIONS (12)
  - RIGHT VENTRICULAR FAILURE [None]
  - SKIN CANDIDA [None]
  - FLUID OVERLOAD [None]
  - CHEST PAIN [None]
  - COUGH [None]
  - HYPOKALAEMIA [None]
  - ANAEMIA [None]
  - PAIN [None]
  - ORTHOPNOEA [None]
  - ELEPHANTIASIS NOSTRAS VERRUCOSA [None]
  - URINARY TRACT INFECTION [None]
  - BLOOD PRESSURE INCREASED [None]
